FAERS Safety Report 5814252-4 (Version None)
Quarter: 2008Q3

REPORT INFORMATION
  Report Type: 
  Country: None (occurrence: None)
  Receive Date: 20080717
  Receipt Date: 20080708
  Transmission Date: 20090109
  Serious: Yes (Other)
  Sender: FDA-Public Use
  Company Number: US-ELI_LILLY_AND_COMPANY-US200807001533

PATIENT
  Sex: Female

DRUGS (2)
  1. HUMULIN N [Suspect]
     Dates: start: 19980101
  2. HUMULIN R [Suspect]
     Dates: start: 19980101

REACTIONS (4)
  - BLOOD GLUCOSE FLUCTUATION [None]
  - DIABETIC COMA [None]
  - SENSORY DISTURBANCE [None]
  - SHOCK HYPOGLYCAEMIC [None]
